FAERS Safety Report 26024658 (Version 2)
Quarter: 2025Q4

REPORT INFORMATION
  Report Type: Spontaneous
  Country: CN (occurrence: CN)
  Receive Date: 20251111
  Receipt Date: 20251112
  Transmission Date: 20260117
  Serious: Yes (Other)
  Sender: ORGANON
  Company Number: CN-BAT-2025BAT001165

PATIENT
  Age: 79 Year
  Sex: Female
  Weight: 66 kg

DRUGS (1)
  1. TOCILIZUMAB-BAVI [Suspect]
     Active Substance: TOCILIZUMAB-BAVI
     Indication: Rheumatoid arthritis
     Dosage: 400.00 MG, QD
     Dates: start: 20251028, end: 20251028

REACTIONS (3)
  - Nausea [Recovering/Resolving]
  - Vomiting [Recovering/Resolving]
  - Product use issue [Unknown]

NARRATIVE: CASE EVENT DATE: 20251028
